FAERS Safety Report 4803675-8 (Version None)
Quarter: 2005Q4

REPORT INFORMATION
  Report Type: 
  Country: None (occurrence: None)
  Receive Date: 20051014
  Receipt Date: 20051006
  Transmission Date: 20060501
  Serious: Yes (Other)
  Sender: FDA-Public Use
  Company Number: 200504420

PATIENT
  Age: 24 Month
  Sex: Male
  Weight: 17 kg

DRUGS (4)
  1. ALESION (EPINASTINE) SYRUP [Suspect]
     Indication: RHINITIS ALLERGIC
     Dosage: 0.7 G DAILY PO
     Route: 048
     Dates: start: 20050513, end: 20050513
  2. KLARICID [Concomitant]
  3. BIOFERMIN [Concomitant]
  4. MUCODYNE [Concomitant]

REACTIONS (1)
  - LOSS OF CONSCIOUSNESS [None]
